FAERS Safety Report 4667812-0 (Version None)
Quarter: 2005Q2

REPORT INFORMATION
  Report Type: 
  Country: None (occurrence: None)
  Receive Date: 20050520
  Receipt Date: 20050510
  Transmission Date: 20051028
  Serious: Yes (Hospitalization)
  Sender: FDA-Public Use
  Company Number: US-JNJFOC-20050502920

PATIENT
  Sex: Female
  Weight: 67.13 kg

DRUGS (8)
  1. TOPAMAX [Suspect]
     Dosage: TRIED MEDICATION A THIRD TIME, DOSAGE UNKNOWN
  2. TOPAMAX [Suspect]
  3. TOPAMAX [Suspect]
     Indication: MIGRAINE
  4. INDERAL [Concomitant]
     Indication: MIGRAINE
     Route: 065
  5. LORTAB [Concomitant]
     Route: 065
  6. LORTAB [Concomitant]
     Indication: PAIN
     Dosage: AS NEEDED
     Route: 065
  7. PRILOSEC [Concomitant]
     Indication: GASTROOESOPHAGEAL REFLUX DISEASE
     Route: 065
  8. PREMARIN [Concomitant]
     Indication: DRUG USE FOR UNKNOWN INDICATION
     Route: 065

REACTIONS (6)
  - ABDOMINAL PAIN UPPER [None]
  - DECREASED APPETITE [None]
  - DEHYDRATION [None]
  - DEPRESSION [None]
  - FLUID INTAKE REDUCED [None]
  - GALLBLADDER DISORDER [None]
